FAERS Safety Report 21066298 (Version 1)
Quarter: 2022Q3

REPORT INFORMATION
  Report Type: Spontaneous
  Country: US (occurrence: US)
  Receive Date: 20220711
  Receipt Date: 20220711
  Transmission Date: 20221027
  Serious: No
  Sender: FDA-Public Use
  Company Number: US-INTRA-CELLULAR THERAPIES, INC.-2022ICT00310

PATIENT
  Sex: Female

DRUGS (5)
  1. CAPLYTA [Suspect]
     Active Substance: LUMATEPERONE
     Indication: Bipolar disorder
     Dosage: .25 DOSAGE UNITS (1/4 CAPSULE), 1X/DAY
     Dates: start: 202203, end: 2022
  2. CAPLYTA [Suspect]
     Active Substance: LUMATEPERONE
     Dosage: .5 DOSAGE UNITS (1/2 CAPSULE), 1X/DAY
     Dates: start: 2022, end: 2022
  3. CAPLYTA [Suspect]
     Active Substance: LUMATEPERONE
     Dosage: .25 DOSAGE UNITS (1/4 CAPSULE), 1X/DAY
     Dates: start: 2022
  4. LAMICTAL [Concomitant]
     Active Substance: LAMOTRIGINE
     Dosage: UNK
  5. LAMICTAL [Concomitant]
     Active Substance: LAMOTRIGINE
     Dosage: INCREASED DOSE

REACTIONS (5)
  - Throat irritation [Unknown]
  - Gastrooesophageal reflux disease [Unknown]
  - Off label use [Not Recovered/Not Resolved]
  - Dizziness [Unknown]
  - Dry mouth [Unknown]

NARRATIVE: CASE EVENT DATE: 20220301
